FAERS Safety Report 8008425-2 (Version None)
Quarter: 2011Q4

REPORT INFORMATION
  Report Type: 
  Country: None (occurrence: None)
  Receive Date: 20111227
  Receipt Date: 20111220
  Transmission Date: 20120403
  Serious: Yes (Other)
  Sender: FDA-Public Use
  Company Number: FR-ROCHE-1023882

PATIENT
  Sex: Male
  Weight: 89 kg

DRUGS (1)
  1. VEMURAFENIB [Suspect]
     Indication: MALIGNANT MELANOMA
     Route: 048
     Dates: start: 20111028

REACTIONS (3)
  - METASTASES TO CENTRAL NERVOUS SYSTEM [None]
  - OEDEMA [None]
  - AMNESIA [None]
